FAERS Safety Report 9328781 (Version 1)
Quarter: 2013Q2

REPORT INFORMATION
  Report Type: Spontaneous
  Country: US (occurrence: US)
  Receive Date: 20130604
  Receipt Date: 20130604
  Transmission Date: 20140414
  Serious: Yes (Other)
  Sender: FDA-Public Use
  Company Number: US-BRISTOL-MYERS SQUIBB COMPANY-18960005

PATIENT
  Age: 65 Year
  Sex: Female
  Weight: 78 kg

DRUGS (4)
  1. COUMADIN [Suspect]
     Indication: ANTIPHOSPHOLIPID ANTIBODIES
  2. CELEBREX [Interacting]
  3. REMICADE [Suspect]
     Indication: RHEUMATOID ARTHRITIS
     Route: 042
  4. METOPROLOL [Concomitant]
     Indication: HYPERTENSION

REACTIONS (2)
  - Pneumonia [Unknown]
  - Drug interaction [Unknown]
